FAERS Safety Report 4323799-1 (Version None)
Quarter: 2004Q1

REPORT INFORMATION
  Report Type: 
  Country: None (occurrence: None)
  Receive Date: 20040325
  Receipt Date: 20040325
  Transmission Date: 20041129
  Serious: Yes (Death)
  Sender: FDA-Public Use
  Company Number: None

PATIENT
  Sex: Male

DRUGS (1)
  1. CYPHER DRUG ELUTING STENT [Suspect]

REACTIONS (2)
  - MEDICAL DEVICE COMPLICATION [None]
  - SUDDEN DEATH [None]
